FAERS Safety Report 17099446 (Version 1)
Quarter: 2019Q4

REPORT INFORMATION
  Report Type: Spontaneous
  Country: US (occurrence: US)
  Receive Date: 20191201
  Receipt Date: 20191201
  Transmission Date: 20200122
  Serious: No
  Sender: FDA-Public Use
  Company Number: None

PATIENT
  Age: 56 Year
  Sex: Female
  Weight: 69.75 kg

DRUGS (1)
  1. ATORVASTATIN 10 MG (GENERIC FOR LIPITOR) [Suspect]
     Active Substance: ATORVASTATIN
     Indication: ANTICOAGULANT THERAPY
     Dates: start: 20150515, end: 20191120

REACTIONS (2)
  - Epicondylitis [None]
  - Grip strength decreased [None]

NARRATIVE: CASE EVENT DATE: 20190105
